FAERS Safety Report 5004548-0 (Version None)
Quarter: 2006Q2

REPORT INFORMATION
  Report Type: 
  Country: None (occurrence: None)
  Receive Date: 20060517
  Receipt Date: 20060426
  Transmission Date: 20061013
  Serious: Yes (Hospitalization)
  Sender: FDA-Public Use
  Company Number: US-BRISTOL-MYERS SQUIBB COMPANY-13358684

PATIENT
  Age: 64 Year
  Sex: Male

DRUGS (4)
  1. ERBITUX [Suspect]
     Indication: OESOPHAGEAL CARCINOMA
     Dosage: INITIATED ON 14-FEB-2006 AT 400 MG/M2/TOTAL DOSE 2820 MG.
     Dates: start: 20060321, end: 20060321
  2. CARBOPLATIN [Suspect]
     Indication: OESOPHAGEAL CARCINOMA
     Dosage: INITIATED ON 14-FEB-2006/DOSE = 2 AUC/TOTAL DOSE 984 MG.
     Dates: start: 20060321, end: 20060321
  3. PACLITAXEL [Suspect]
     Indication: OESOPHAGEAL CARCINOMA
     Dosage: INITIATED ON 14-FEB-2006/ADMINISTERED WEEKLY X 6/TOTAL DOSE = 513 MG.
     Dates: start: 20060321, end: 20060321
  4. RADIATION THERAPY [Suspect]
     Indication: OESOPHAGEAL CARCINOMA
     Dosage: INITIATED ON 14-FEB-2006/TOTAL DOSE 50.4 GY/28 FRACTIONS.  DATE OF LAST DOSE NOT PROVIDED.
     Dates: start: 20060101, end: 20060324

REACTIONS (3)
  - BLOOD CREATININE INCREASED [None]
  - DEHYDRATION [None]
  - DYSPNOEA [None]
